FAERS Safety Report 6348795-4 (Version None)
Quarter: 2009Q3

REPORT INFORMATION
  Report Type: 
  Country: None (occurrence: None)
  Receive Date: 20090911
  Receipt Date: 20090908
  Transmission Date: 20100115
  Serious: Yes (Other)
  Sender: FDA-Public Use
  Company Number: TR-BRISTOL-MYERS SQUIBB COMPANY-14770176

PATIENT
  Age: 51 Year
  Sex: Female

DRUGS (5)
  1. PACLITAXEL [Suspect]
     Indication: OVARIAN CANCER
     Route: 042
  2. DEXAMETHASONE [Concomitant]
     Indication: PREMEDICATION
  3. RANITIDINE [Concomitant]
     Indication: PREMEDICATION
  4. GRANISETRON HCL [Concomitant]
     Indication: PREMEDICATION
  5. PHENIRAMINE [Concomitant]
     Indication: PREMEDICATION

REACTIONS (1)
  - ACUTE CORONARY SYNDROME [None]
